FAERS Safety Report 10041031 (Version 1)
Quarter: 2014Q1

REPORT INFORMATION
  Report Type: Spontaneous
  Country: US (occurrence: None)
  Receive Date: 20140326
  Receipt Date: 20140326
  Transmission Date: 20141002
  Serious: No
  Sender: FDA-Public Use
  Company Number: None

PATIENT
  Sex: 0

DRUGS (2)
  1. SELECT BRAND COUGH CONTROL SYRUP DM MAX [Suspect]
     Dosage: 4 OUNCE BOTTLE, 1 DOSE
     Dates: start: 20140120
  2. SELECT BRAND COUGH CONTROL SYRUP DM MAX [Suspect]
     Dosage: 4 OUNCE BOTTLE, 1 DOSE
     Dates: start: 20140120

REACTIONS (5)
  - Product deposit [None]
  - Liquid product physical issue [None]
  - Blood urine present [None]
  - Nephrolithiasis [None]
  - Back pain [None]
